FAERS Safety Report 8885215 (Version 2)
Quarter: 2012Q4

REPORT INFORMATION
  Report Type: 
  Country: US (occurrence: US)
  Receive Date: 20121102
  Receipt Date: 20121220
  Transmission Date: 20130627
  Serious: Yes (Hospitalization)
  Sender: FDA-Public Use
  Company Number: US-GENZYME-FABR-1002810

PATIENT
  Age: 30 Year
  Sex: Female

DRUGS (16)
  1. FABRAZYME [Suspect]
     Indication: FABRY^S DISEASE
     Dosage: 1 mg/kg, q2w
     Route: 042
     Dates: start: 20110301
  2. FABRAZYME [Suspect]
     Dosage: 55 mg, q2w
     Route: 042
     Dates: start: 200501, end: 20100413
  3. GABAPENTIN [Concomitant]
     Indication: NEURALGIA
     Dosage: 600 mg, tid, Increase 300 mg every 3-4d to 1800 mg
     Route: 048
  4. WELLBUTRIN [Concomitant]
     Indication: PRODUCT USED FOR UNKNOWN INDICATION
     Dosage: 300 mg, qd
     Route: 048
  5. SOMA [Concomitant]
     Indication: PRODUCT USED FOR UNKNOWN INDICATION
     Dosage: 250 mg, prn
     Route: 048
  6. FENTANYL [Concomitant]
     Indication: PRODUCT USED FOR UNKNOWN INDICATION
     Dosage: 50 mcg, qdx3
     Route: 062
  7. FLONASE [Concomitant]
     Indication: PRODUCT USED FOR UNKNOWN INDICATION
     Dosage: 50 mcg, prn
     Route: 045
  8. DEPO-PROVERA [Concomitant]
     Indication: PRODUCT USED FOR UNKNOWN INDICATION
     Dosage: UNK
     Route: 030
  9. OXYCONTIN [Concomitant]
     Indication: PAIN
     Dosage: 10 mg, q12hr
     Route: 048
  10. OXYCODONE [Concomitant]
     Indication: PAIN
     Dosage: 5-325 mg q6h
     Route: 048
  11. DELTASONE [Concomitant]
     Indication: THERAPEUTIC PROCEDURE
     Dosage: 10 mg, UNK
     Route: 048
  12. TIZANIDINE [Concomitant]
     Indication: PRODUCT USED FOR UNKNOWN INDICATION
     Dosage: 4 mg, UNK
  13. TOPIRAMATE [Concomitant]
     Indication: PRODUCT USED FOR UNKNOWN INDICATION
     Dosage: 50 mg, tid
     Route: 048
  14. VENLAFAXINE [Concomitant]
     Indication: PRODUCT USED FOR UNKNOWN INDICATION
     Dosage: 300 mg, qd
     Route: 048
  15. ALBUTEROL [Concomitant]
     Indication: PRODUCT USED FOR UNKNOWN INDICATION
     Dosage: UNK
  16. ALPRAZOLAM [Concomitant]
     Indication: ANXIETY
     Dosage: UNK
     Route: 048

REACTIONS (1)
  - Atrial thrombosis [Not Recovered/Not Resolved]
